FAERS Safety Report 7511144-X (Version None)
Quarter: 2011Q2

REPORT INFORMATION
  Report Type: 
  Country: None (occurrence: None)
  Receive Date: 20110531
  Receipt Date: 20110519
  Transmission Date: 20111010
  Serious: No
  Sender: FDA-Public Use
  Company Number: JP-JNJFOC-20110304802

PATIENT
  Age: 75 Year
  Sex: Female

DRUGS (7)
  1. PAXIL [Concomitant]
     Route: 048
  2. PANCREAZE [Concomitant]
     Route: 048
  3. TETRAMIDE [Concomitant]
     Route: 048
  4. SODIUM BICARBONATE [Concomitant]
     Route: 048
  5. STARCH [Concomitant]
     Route: 048
  6. FENTANYL-100 [Suspect]
     Indication: CANCER PAIN
     Route: 062
  7. GENTIAN [Concomitant]
     Route: 048

REACTIONS (4)
  - WRONG TECHNIQUE IN DRUG USAGE PROCESS [None]
  - AGITATION [None]
  - INSOMNIA [None]
  - INADEQUATE ANALGESIA [None]
